FAERS Safety Report 5677229-8 (Version None)
Quarter: 2008Q1

REPORT INFORMATION
  Report Type: 
  Country: None (occurrence: None)
  Receive Date: 20080324
  Receipt Date: 20070730
  Transmission Date: 20080703
  Serious: Yes (Hospitalization)
  Sender: FDA-Public Use
  Company Number: US-ASTRAZENECA-2007UW02072

PATIENT
  Age: 27 Year
  Sex: Female
  Weight: 135.5 kg

DRUGS (73)
  1. SEROQUEL [Suspect]
     Indication: POST-TRAUMATIC STRESS DISORDER
     Route: 048
     Dates: start: 20010901, end: 20060101
  2. ACCUPRIL [Concomitant]
  3. TOPROL-XL [Concomitant]
  4. VALPROIC ACID [Concomitant]
  5. DEPAKOTE [Concomitant]
  6. COUMADIN [Concomitant]
  7. CLEOCIN HYDROCHLORIDE [Concomitant]
  8. LASIX [Concomitant]
  9. TOPAMAX [Concomitant]
  10. LORAZEPAM [Concomitant]
  11. ALDACTONE [Concomitant]
  12. AXID [Concomitant]
  13. NAPROXEN [Concomitant]
  14. AMBIEN [Concomitant]
  15. DIGITEK [Concomitant]
  16. AUGMENTIN '125' [Concomitant]
  17. NITROSTAT [Concomitant]
  18. TRICOR [Concomitant]
  19. TYLENOL W/ CODEINE [Concomitant]
  20. VICODIN [Concomitant]
  21. WARFARIN SODIUM [Concomitant]
  22. HUMIBID [Concomitant]
  23. LACTULOSE [Concomitant]
  24. LANOXIN [Concomitant]
  25. RONDEC [Concomitant]
  26. XANAX [Concomitant]
  27. DENAVIR [Concomitant]
     Dosage: 1%
  28. KENALOG IN ORABASE [Concomitant]
  29. METROGEL [Concomitant]
  30. DOXYCYCLINE [Concomitant]
  31. LORCET [Concomitant]
  32. HYDROCODONE BITARTRATE [Concomitant]
  33. AMPICILLIN [Concomitant]
  34. FLAGYL [Concomitant]
  35. MEDROL [Concomitant]
  36. KEFLEX [Concomitant]
  37. COMPAZINE [Concomitant]
  38. SPIRONOLACTONE [Concomitant]
  39. ZONEGRAN [Concomitant]
  40. TRICOR [Concomitant]
  41. NEXIUM [Concomitant]
  42. ALBUTEROL [Concomitant]
  43. PROCHLORPERAZINE [Concomitant]
  44. ZELNORM [Concomitant]
  45. SYNALAR [Concomitant]
  46. PEPCID [Concomitant]
  47. ALLEGRA [Concomitant]
  48. CIPRO [Concomitant]
  49. TERAZOL 7 [Concomitant]
  50. DIFLUCAN [Concomitant]
  51. ZESTRIL [Concomitant]
  52. TRIAMCINOLONE [Concomitant]
  53. TEMAZEPAM [Concomitant]
  54. NORCO [Concomitant]
  55. ZITHROMAX [Concomitant]
  56. PREDNISONE TAB [Concomitant]
  57. DEMEROL [Concomitant]
  58. LUNESTA [Concomitant]
  59. PROSOM [Concomitant]
  60. FELDENE [Concomitant]
  61. ELAVIL [Concomitant]
  62. SINGULAIR [Concomitant]
  63. PYRIDIUM [Concomitant]
  64. AMOXIL [Concomitant]
  65. MOBIC [Concomitant]
  66. MIDRIN [Concomitant]
  67. BACLOFEN [Concomitant]
  68. SONATA [Concomitant]
  69. CLARITIN [Concomitant]
  70. TRETINOIN [Concomitant]
  71. NASONEX [Concomitant]
  72. TESSALON [Concomitant]
  73. REDUX [Concomitant]

REACTIONS (4)
  - CARDIAC DISORDER [None]
  - KNEE OPERATION [None]
  - MIGRAINE [None]
  - TYPE 1 DIABETES MELLITUS [None]
